FAERS Safety Report 6875779-X (Version None)
Quarter: 2010Q3

REPORT INFORMATION
  Report Type: 
  Country: None (occurrence: None)
  Receive Date: 20100727
  Receipt Date: 20100723
  Transmission Date: 20110219
  Serious: Yes (Death)
  Sender: FDA-Public Use
  Company Number: US-GILEAD-2010-0030447

PATIENT
  Sex: Female
  Weight: 68.1 kg

DRUGS (14)
  1. LETAIRIS [Suspect]
     Indication: PULMONARY ARTERIAL HYPERTENSION
     Route: 048
     Dates: start: 20100331, end: 20100524
  2. COUMADIN [Concomitant]
  3. LASIX [Concomitant]
  4. ALDACTONE [Concomitant]
  5. DIGOXIN [Concomitant]
  6. SINGULAIR [Concomitant]
  7. COMBIVENT [Concomitant]
  8. SYMBICORT [Concomitant]
  9. PREDNISONE [Concomitant]
  10. NEXIUM [Concomitant]
  11. SYNTHROID [Concomitant]
  12. NEURONTIN [Concomitant]
  13. CELEXA [Concomitant]
  14. KLOR-CON [Concomitant]

REACTIONS (3)
  - DEATH [None]
  - HYPOXIA [None]
  - RIGHT VENTRICULAR FAILURE [None]
